FAERS Safety Report 8814725 (Version 1)
Quarter: 2012Q4

REPORT INFORMATION
  Report Type: 
  Country: FR (occurrence: FR)
  Receive Date: 20120928
  Receipt Date: 20120928
  Transmission Date: 20130627
  Serious: Yes (Other)
  Sender: FDA-Public Use
  Company Number: FR-009507513-1209FRA009319

PATIENT
  Age: 53 Year
  Sex: Female

DRUGS (3)
  1. VIRAFERONPEG [Suspect]
     Indication: HEPATITIS C
     Dosage: 1.5 Microgram per kilogram, UNK
  2. VIRAFERONPEG [Suspect]
     Dosage: 1 Microgram per kilogram, UNK
  3. REBETOL [Suspect]
     Indication: HEPATITIS C

REACTIONS (1)
  - Anaemia [Recovering/Resolving]
